FAERS Safety Report 18360492 (Version 1)
Quarter: 2020Q4

REPORT INFORMATION
  Report Type: Spontaneous
  Country: US (occurrence: US)
  Receive Date: 20201007
  Receipt Date: 20201007
  Transmission Date: 20210114
  Serious: Yes (Hospitalization)
  Sender: FDA-Public Use
  Company Number: None

PATIENT
  Age: 11 Year
  Sex: Female

DRUGS (8)
  1. PULMOZYME [Suspect]
     Active Substance: DORNASE ALFA
     Indication: CYSTIC FIBROSIS
     Dosage: ?          OTHER DOSE:1MG/1ML;OTHER ROUTE:INHALATION?
     Dates: start: 20140709
  2. PERTZYE [Suspect]
     Active Substance: PANCRELIPASE AMYLASE\PANCRELIPASE LIPASE\PANCRELIPASE PROTEASE
     Indication: CYSTIC FIBROSIS
     Dosage: ?          OTHER STRENGTH:16000;OTHER DOSE:16000;OTHER FREQUENCY:18CAPS/DAY;?
     Route: 048
     Dates: start: 20140123
  3. ALBUTEROL. [Concomitant]
     Active Substance: ALBUTEROL
  4. DEKAS PLUS [Concomitant]
  5. IPATROPIUM [Concomitant]
  6. BUDESONIDE. [Concomitant]
     Active Substance: BUDESONIDE
  7. VOKACE [Concomitant]
  8. SODIUM CHORIDE [Concomitant]

REACTIONS (1)
  - Oxygen saturation decreased [None]
